FAERS Safety Report 9363539 (Version 1)
Quarter: 2013Q2

REPORT INFORMATION
  Report Type: Spontaneous
  Country: US (occurrence: US)
  Receive Date: 20130624
  Receipt Date: 20130624
  Transmission Date: 20140414
  Serious: Yes (Other)
  Sender: FDA-Public Use
  Company Number: US-JNJFOC-20130610739

PATIENT
  Age: 61 Year
  Sex: Male
  Weight: 83.92 kg

DRUGS (3)
  1. SIMPONI [Suspect]
     Indication: ANKYLOSING SPONDYLITIS
     Route: 058
  2. OXYCODONE [Concomitant]
     Indication: PAIN
     Route: 048
     Dates: start: 2011
  3. OXYCODONE [Concomitant]
     Indication: PAIN
     Route: 048
     Dates: start: 2001, end: 2011

REACTIONS (3)
  - Myocardial infarction [Unknown]
  - Drug dose omission [Not Recovered/Not Resolved]
  - Device malfunction [Unknown]
